FAERS Safety Report 7218428-3 (Version None)
Quarter: 2011Q1

REPORT INFORMATION
  Report Type: 
  Country: None (occurrence: None)
  Receive Date: 20110110
  Receipt Date: 20110104
  Transmission Date: 20110831
  Serious: Yes (Hospitalization)
  Sender: FDA-Public Use
  Company Number: NL-PFIZER INC-2011002159

PATIENT
  Age: 58 Year
  Sex: Female
  Weight: 65 kg

DRUGS (3)
  1. ROACTEMRA [Suspect]
     Indication: RHEUMATOID ARTHRITIS
     Dosage: 26 ML, CYCLIC
     Dates: start: 20090603, end: 20101021
  2. PREDNISOLONE [Concomitant]
     Dosage: UNK
     Dates: start: 20101101
  3. ARTHROTEC [Suspect]
     Indication: ARTHRITIS
     Dosage: 150 UNK, UNK
     Dates: start: 20101021

REACTIONS (1)
  - DIVERTICULITIS [None]
